FAERS Safety Report 5773089-5 (Version None)
Quarter: 2008Q2

REPORT INFORMATION
  Report Type: 
  Country: None (occurrence: None)
  Receive Date: 20080611
  Receipt Date: 20080609
  Transmission Date: 20081010
  Serious: Yes (Hospitalization)
  Sender: FDA-Public Use
  Company Number: 2008AL004222

PATIENT
  Age: 60 Year
  Sex: Female

DRUGS (4)
  1. DIGOXIN [Suspect]
     Indication: ATRIAL FIBRILLATION
     Dosage: 0.25 MG DAILY PO
     Route: 048
  2. HUMULOG INSULIN [Concomitant]
  3. MANTIS [Concomitant]
  4. NEXIUM [Concomitant]

REACTIONS (5)
  - ASTHENIA [None]
  - CHEST PAIN [None]
  - DYSPNOEA [None]
  - HEART RATE INCREASED [None]
  - MALAISE [None]
